FAERS Safety Report 6766694-0 (Version None)
Quarter: 2010Q2

REPORT INFORMATION
  Report Type: 
  Country: None (occurrence: None)
  Receive Date: 20100611
  Receipt Date: 20100604
  Transmission Date: 20101027
  Serious: Yes (Other)
  Sender: FDA-Public Use
  Company Number: CO-JNJFOC-20100602295

PATIENT
  Age: 3 Year
  Sex: Male

DRUGS (3)
  1. TOPAMAC [Suspect]
     Indication: EPILEPSY
     Route: 065
  2. VALPROIC ACID [Interacting]
     Indication: DRUG USE FOR UNKNOWN INDICATION
     Route: 065
  3. CARBAMAZEPINE [Concomitant]
     Indication: DRUG USE FOR UNKNOWN INDICATION
     Route: 065

REACTIONS (4)
  - ABASIA [None]
  - COORDINATION ABNORMAL [None]
  - DRUG INTERACTION [None]
  - EPILEPSY [None]
